FAERS Safety Report 12964600 (Version 3)
Quarter: 2016Q4

REPORT INFORMATION
  Report Type: Report from Study
  Country: US (occurrence: US)
  Receive Date: 20161122
  Receipt Date: 20161213
  Transmission Date: 20170207
  Serious: Yes (Hospitalization, Other)
  Sender: FDA-Public Use
  Company Number: US-UCBSA-2016038943

PATIENT
  Age: 31 Year
  Sex: Male
  Weight: 56 kg

DRUGS (5)
  1. CERTOLIZUMAB PEGOL [Suspect]
     Active Substance: CERTOLIZUMAB PEGOL
     Indication: CROHN^S DISEASE
     Dosage: 400 MG, EV 4 WEEKS
     Route: 058
     Dates: start: 20140314, end: 201610
  2. AZATHIOPRINE. [Concomitant]
     Active Substance: AZATHIOPRINE
     Indication: CROHN^S DISEASE
     Dosage: UNK
  3. IMURAN [Concomitant]
     Active Substance: AZATHIOPRINE
     Indication: PRODUCT USED FOR UNKNOWN INDICATION
     Dosage: UNK
  4. PREDNISONE. [Concomitant]
     Active Substance: PREDNISONE
     Indication: PRODUCT USED FOR UNKNOWN INDICATION
     Dosage: UNK
  5. PENTASA [Concomitant]
     Active Substance: MESALAMINE
     Indication: CROHN^S DISEASE
     Dosage: UNK

REACTIONS (8)
  - Gastrointestinal fistula [Unknown]
  - Fatigue [Recovered/Resolved]
  - Abscess [Unknown]
  - Enterocutaneous fistula [Unknown]
  - Drug ineffective [Unknown]
  - Drug level decreased [Unknown]
  - Abdominal pain [Recovered/Resolved]
  - Pyrexia [Recovered/Resolved]

NARRATIVE: CASE EVENT DATE: 201501
